FAERS Safety Report 4485468-7 (Version None)
Quarter: 2004Q4

REPORT INFORMATION
  Report Type: 
  Country: None (occurrence: None)
  Receive Date: 20041026
  Receipt Date: 20041020
  Transmission Date: 20050328
  Serious: Yes (Other)
  Sender: FDA-Public Use
  Company Number: 200420462GDDC

PATIENT
  Age: 56 Year
  Sex: Male

DRUGS (3)
  1. LANTUS [Suspect]
     Indication: DIABETES MELLITUS INSULIN-DEPENDENT
  2. SEROQUEL [Concomitant]
     Route: 048
     Dates: start: 20030101
  3. HUMAN ACTRAPHANE [Concomitant]
     Dosage: FREQUENCY: BEFORE MEALS

REACTIONS (3)
  - DIZZINESS [None]
  - HYPERHIDROSIS [None]
  - UNEVALUABLE EVENT [None]
